FAERS Safety Report 5847479-6 (Version None)
Quarter: 2008Q3

REPORT INFORMATION
  Report Type: 
  Country: None (occurrence: None)
  Receive Date: 20080814
  Receipt Date: 20080731
  Transmission Date: 20090109
  Serious: Yes (Other)
  Sender: FDA-Public Use
  Company Number: DSA_32213_2008

PATIENT
  Age: 61 Year
  Sex: Male

DRUGS (8)
  1. ATIVAN [Suspect]
     Indication: DRUG USE FOR UNKNOWN INDICATION
     Dosage: (TOOK SEVERAL TABLETS IN HIS SLEEP), (DF)
     Dates: start: 20030118, end: 20030118
  2. AMBIEN [Suspect]
     Indication: INSOMNIA
     Dosage: (10 MG PRN ORAL)
     Route: 048
  3. PHENERGAN [Suspect]
     Indication: DRUG USE FOR UNKNOWN INDICATION
     Dosage: (DF)
  4. REGLAN [Suspect]
     Indication: DRUG USE FOR UNKNOWN INDICATION
     Dosage: (DF)
  5. PROZAC /00724401/ [Concomitant]
  6. TEMAZEPAM [Concomitant]
  7. ACIPHEX [Concomitant]
  8. ALTACE [Concomitant]

REACTIONS (6)
  - ABNORMAL SLEEP-RELATED EVENT [None]
  - DELIRIUM [None]
  - IMPRISONMENT [None]
  - MENTAL DISORDER [None]
  - ROAD TRAFFIC ACCIDENT [None]
  - SOMNAMBULISM [None]
